FAERS Safety Report 13396850 (Version 1)
Quarter: 2017Q2

REPORT INFORMATION
  Report Type: Spontaneous
  Country: None (occurrence: US)
  Receive Date: 20170403
  Receipt Date: 20170403
  Transmission Date: 20170830
  Serious: Yes (Other)
  Sender: FDA-Public Use
  Company Number: None

PATIENT
  Age: 62 Year
  Sex: Female

DRUGS (2)
  1. WELLBUTRIN XL 300 IN OBLONG GENERIC FORM [Suspect]
     Active Substance: BUPROPION HYDROCHLORIDE
     Indication: PERSISTENT DEPRESSIVE DISORDER
     Route: 048
     Dates: start: 200606
  2. WELLBUTRIN XL 150 IN OBLONG GENERIC FORM [Suspect]
     Active Substance: BUPROPION HYDROCHLORIDE

REACTIONS (2)
  - Product substitution issue [None]
  - Therapy non-responder [None]

NARRATIVE: CASE EVENT DATE: 20170328
